FAERS Safety Report 8816800 (Version 2)
Quarter: 2013Q1

REPORT INFORMATION
  Report Type: Spontaneous
  Country: GB (occurrence: None)
  Receive Date: 20121001
  Receipt Date: 20121015
  Transmission Date: 20140127
  Serious: Yes (Hospitalization)
  Sender: FDA-Public Use
  Company Number: GER/UKI/12/0026031

PATIENT
  Age: 80 Year
  Sex: Female
  Weight: 70 kg

DRUGS (5)
  1. CETIRIZINE [Suspect]
     Indication: SEASONAL ALLERGY
     Route: 048
     Dates: start: 20120912, end: 20120916
  2. ADCAL-D3 (LEKOVIT CA) [Concomitant]
  3. ASPIRIN (ACETYLSALICYLIC ACID) [Concomitant]
  4. OMEPRAZOLE(OMEPRAZOLE) [Concomitant]
  5. RANITIDINE(RANITIDINE) [Concomitant]

REACTIONS (3)
  - Fall [None]
  - Hyponatraemia [None]
  - Drug administered to patient of inappropriate age [None]
